FAERS Safety Report 17359041 (Version 2)
Quarter: 2020Q1

REPORT INFORMATION
  Report Type: Report from Study
  Country: None (occurrence: CA)
  Receive Date: 20200202
  Receipt Date: 20200302
  Transmission Date: 20200409
  Serious: Yes (Hospitalization, Other)
  Sender: FDA-Public Use
  Company Number: CA-ABBVIE-20K-028-3257364-00

PATIENT
  Age: 57 Year
  Sex: Female

DRUGS (1)
  1. HUMIRA [Suspect]
     Active Substance: ADALIMUMAB
     Indication: PSORIATIC ARTHROPATHY
     Route: 058
     Dates: start: 20100331

REACTIONS (8)
  - Post procedural infection [Not Recovered/Not Resolved]
  - Urinary tract infection [Unknown]
  - Pathogen resistance [Unknown]
  - Escherichia infection [Not Recovered/Not Resolved]
  - Biliary catheter insertion [Not Recovered/Not Resolved]
  - Cholecystitis acute [Unknown]
  - Enterococcal infection [Not Recovered/Not Resolved]
  - Pain [Not Recovered/Not Resolved]

NARRATIVE: CASE EVENT DATE: 20191227
